FAERS Safety Report 8131423-5 (Version None)
Quarter: 2012Q1

REPORT INFORMATION
  Report Type: 
  Country: None (occurrence: None)
  Receive Date: 20120207
  Receipt Date: 20120124
  Transmission Date: 20120608
  Serious: Yes (Other)
  Sender: FDA-Public Use
  Company Number: 2012HGS-003187

PATIENT
  Sex: Female

DRUGS (1)
  1. BENLYSTA [Suspect]
     Dosage: 10 MG/KG, INTRAVENOUS DRIP
     Route: 041
     Dates: start: 20111118

REACTIONS (1)
  - PNEUMOMEDIASTINUM [None]
